FAERS Safety Report 14467142 (Version 1)
Quarter: 2018Q1

REPORT INFORMATION
  Report Type: Spontaneous
  Country: US (occurrence: US)
  Receive Date: 20180131
  Receipt Date: 20180131
  Transmission Date: 20180509
  Serious: No
  Sender: FDA-Public Use
  Company Number: US-BAYER-2018-013820

PATIENT
  Age: 75 Year
  Sex: Male
  Weight: 99 kg

DRUGS (6)
  1. MIRALAX [Suspect]
     Active Substance: POLYETHYLENE GLYCOL 3350
     Indication: CONSTIPATION
     Dosage: 0.5 DF (HALF CUPFUL), QD
     Route: 048
     Dates: start: 2016
  2. FOLIC ACID. [Concomitant]
     Active Substance: FOLIC ACID
  3. INSULIN [Concomitant]
     Active Substance: INSULIN NOS
  4. VITAMIN B12 [Concomitant]
     Active Substance: CYANOCOBALAMIN
  5. CENTRUM SILVER [Concomitant]
     Active Substance: MINERALS\VITAMINS
  6. BAYER ASPIRIN [Concomitant]
     Active Substance: ASPIRIN

REACTIONS (9)
  - Poor quality drug administered [Unknown]
  - Product taste abnormal [Unknown]
  - Intentional product misuse [Unknown]
  - Product odour abnormal [Unknown]
  - Product use in unapproved indication [Unknown]
  - Incorrect dose administered [Unknown]
  - Drug prescribing error [Unknown]
  - Off label use [Unknown]
  - Inappropriate schedule of drug administration [Unknown]

NARRATIVE: CASE EVENT DATE: 2016
